FAERS Safety Report 6472939-7 (Version None)
Quarter: 2009Q4

REPORT INFORMATION
  Report Type: 
  Country: None (occurrence: None)
  Receive Date: 20091203
  Receipt Date: 20090120
  Transmission Date: 20100525
  Serious: No
  Sender: FDA-Public Use
  Company Number: US-AMGEN-KDL325363

PATIENT
  Sex: Female

DRUGS (3)
  1. ENBREL [Suspect]
     Indication: RHEUMATOID ARTHRITIS
     Route: 058
     Dates: start: 20040401
  2. METHOTREXATE [Concomitant]
  3. LEFLUNOMIDE [Concomitant]
     Route: 048
     Dates: start: 20071222

REACTIONS (3)
  - INJECTION SITE ANAESTHESIA [None]
  - INJECTION SITE NERVE DAMAGE [None]
  - INJECTION SITE PAIN [None]
